FAERS Safety Report 23098059 (Version 1)
Quarter: 2023Q4

REPORT INFORMATION
  Report Type: Spontaneous
  Country: FR (occurrence: FR)
  Receive Date: 20231023
  Receipt Date: 20231023
  Transmission Date: 20240110
  Serious: Yes (Life-Threatening)
  Sender: FDA-Public Use
  Company Number: None

PATIENT
  Age: 61 Year
  Sex: Female
  Weight: 83.5 kg

DRUGS (8)
  1. PROPOFOL [Suspect]
     Active Substance: PROPOFOL
     Indication: General anaesthesia
     Dosage: 180 MILLIGRAM, 1 TOTAL
     Route: 042
     Dates: start: 20230915, end: 20230915
  2. SUFENTANIL [Suspect]
     Active Substance: SUFENTANIL
     Indication: General anaesthesia
     Dosage: 25 MICROGRAM, 1 TOTAL
     Route: 042
     Dates: start: 20230915, end: 20230915
  3. DEXAMETHASONE [Suspect]
     Active Substance: DEXAMETHASONE
     Indication: Hysteroscopy
     Dosage: 8 MILLIGRAM, 1 TOTAL
     Route: 042
     Dates: start: 20230915, end: 20230915
  4. LIDOCAINE [Suspect]
     Active Substance: LIDOCAINE
     Indication: Hysteroscopy
     Dosage: 25 MICROGRAM, 1 TOTAL
     Route: 042
     Dates: start: 20230915, end: 20230915
  5. ACUPAN [Suspect]
     Active Substance: NEFOPAM HYDROCHLORIDE
     Indication: Procedural pain
     Dosage: UNK
     Route: 042
     Dates: start: 20230915, end: 20230915
  6. KETAMINE [Suspect]
     Active Substance: KETAMINE
     Indication: General anaesthesia
     Dosage: UNK
     Route: 042
     Dates: start: 20230915, end: 20230915
  7. DROPERIDOL [Suspect]
     Active Substance: DROPERIDOL
     Indication: Procedural pain
     Dosage: 1.5 MILLIGRAM, 1 TOTAL
     Route: 042
     Dates: start: 20230915, end: 20230915
  8. SEVOFLURANE [Suspect]
     Active Substance: SEVOFLURANE
     Indication: General anaesthesia
     Dosage: UNK
     Route: 055
     Dates: start: 20230915, end: 20230915

REACTIONS (1)
  - Bronchospasm [Recovered/Resolved]

NARRATIVE: CASE EVENT DATE: 20230915
